FAERS Safety Report 6639463-X (Version None)
Quarter: 2010Q1

REPORT INFORMATION
  Report Type: 
  Country: None (occurrence: None)
  Receive Date: 20100315
  Receipt Date: 20100304
  Transmission Date: 20100710
  Serious: Yes (Hospitalization)
  Sender: FDA-Public Use
  Company Number: 2010EU000870

PATIENT
  Age: 36 Year
  Sex: Female
  Weight: 59.4 kg

DRUGS (2)
  1. PROGRAF [Suspect]
     Indication: HEART TRANSPLANT
     Dosage: 1 MG, Q12 HOURS, ORAL
     Route: 048
     Dates: start: 20080114
  2. CERTICAN [Suspect]
     Indication: HEART TRANSPLANT
     Dosage: 0.75 MG, UNKNOWN/D, ORAL
     Route: 048
     Dates: start: 20071130, end: 20071207

REACTIONS (7)
  - ABDOMINAL PAIN [None]
  - DYSURIA [None]
  - NEPHROLITHIASIS [None]
  - PALPITATIONS [None]
  - POST TRANSPLANT DISTAL LIMB SYNDROME [None]
  - PYREXIA [None]
  - SINUS TACHYCARDIA [None]
